FAERS Safety Report 6756854-7 (Version None)
Quarter: 2010Q2

REPORT INFORMATION
  Report Type: 
  Country: None (occurrence: None)
  Receive Date: 20100524
  Receipt Date: 20100211
  Transmission Date: 20101027
  Serious: No
  Sender: FDA-Public Use
  Company Number: 006921

PATIENT
  Sex: Male

DRUGS (14)
  1. CIMZIA [Suspect]
     Indication: CROHN'S DISEASE
     Dosage: (400 MG SUBCUTANEOUS)
     Route: 058
     Dates: start: 20081001
  2. METHADONE [Concomitant]
  3. CYCLOSPORINE [Concomitant]
  4. GABAPENTIN [Concomitant]
  5. HYDROCODONE BITARTRATE [Concomitant]
  6. CRESTOR /01588602/ [Concomitant]
  7. SYNTHROID [Concomitant]
  8. LISINOPRIL [Concomitant]
  9. GLIMEPIRIDE [Concomitant]
  10. CELEBREX [Concomitant]
  11. PROVIGIL [Concomitant]
  12. JANUVIA [Concomitant]
  13. ALISKIREN [Concomitant]
  14. ACIDOPHILUS [Concomitant]

REACTIONS (1)
  - HERPES ZOSTER [None]
